FAERS Safety Report 25423168 (Version 2)
Quarter: 2025Q2

REPORT INFORMATION
  Report Type: Spontaneous
  Country: US (occurrence: US)
  Receive Date: 20250611
  Receipt Date: 20250627
  Transmission Date: 20250717
  Serious: No
  Sender: PFIZER
  Company Number: US-PFIZER INC-202500117384

PATIENT
  Age: 14 Year
  Sex: Female

DRUGS (1)
  1. GENOTROPIN [Suspect]
     Active Substance: SOMATROPIN
     Indication: End stage renal disease
     Dosage: 1.6 MG/DAY 7 DAYS/WEEK

REACTIONS (2)
  - Device breakage [Unknown]
  - Off label use [Unknown]
